FAERS Safety Report 11311510 (Version 1)
Quarter: 2015Q3

REPORT INFORMATION
  Report Type: Spontaneous
  Country: US (occurrence: US)
  Receive Date: 20150727
  Receipt Date: 20150727
  Transmission Date: 20151125
  Serious: Yes (Death, Other)
  Sender: FDA-Public Use
  Company Number: US-JNJFOC-20150715832

PATIENT

DRUGS (16)
  1. RITUXIMAB [Suspect]
     Active Substance: RITUXIMAB
     Indication: BURKITT^S LYMPHOMA
     Dosage: ON DAY 1 OF EACH CYCLE IN REGIMEN A(R-CODOX-M) AND IN REGIMEN B (IVAC)
     Route: 042
  2. METHOTREXATE [Suspect]
     Active Substance: METHOTREXATE
     Indication: BURKITT^S LYMPHOMA
     Route: 042
  3. VINCRISTINE [Suspect]
     Active Substance: VINCRISTINE
     Indication: BURKITT^S LYMPHOMA
     Dosage: ON DAY 1 AND DAY 8 OF EACH CYCLE IN REGIMEN A(R-CODOX-M). MAXIMUM OF 2 MG DOSE
     Route: 042
  4. LEUCOVORIN. [Suspect]
     Active Substance: LEUCOVORIN
     Indication: BURKITT^S LYMPHOMA
     Dosage: 24 HOURS AFTER METHOTREXATE
     Route: 042
  5. GRANULOCYTE COLONY STIMULATING FACTOR [Suspect]
     Active Substance: GRANULOCYTE COLONY-STIMULATING FACTOR NOS
     Indication: BURKITT^S LYMPHOMA
     Dosage: APPROXIAMTELY ON DAY 18 OF EACH CYCLE IN REGIMEN A (R-CODOX-M)
     Route: 065
  6. MESNA. [Suspect]
     Active Substance: MESNA
     Indication: BURKITT^S LYMPHOMA
     Dosage: ON DAY 1-5 OF EACH CYCLE IN REGIMEN B(IVAC)
     Route: 042
  7. METHOTREXATE [Suspect]
     Active Substance: METHOTREXATE
     Indication: BURKITT^S LYMPHOMA
     Dosage: ON DAY 5 OF EACH CYCLE IN REGIMEN B (IVAC)
     Route: 037
  8. DOXORUBICIN HYDROCHLORIDE. [Suspect]
     Active Substance: DOXORUBICIN HYDROCHLORIDE
     Indication: BURKITT^S LYMPHOMA
     Dosage: ON DAY 1 OF EACH CYCLE IN REGIMEN A(R-CODOX-M)
     Route: 042
  9. IFOSFAMIDE. [Suspect]
     Active Substance: IFOSFAMIDE
     Indication: BURKITT^S LYMPHOMA
     Dosage: ON DAY 1-5 OF EACH CYCLE IN REGIMEN B(IVAC)
     Route: 042
  10. ETOPOSIDE. [Suspect]
     Active Substance: ETOPOSIDE
     Indication: BURKITT^S LYMPHOMA
     Dosage: ON DAY 1-5 OF EACH CYCLE IN REGIMEN B (IVAC)
     Route: 042
  11. CYCLOPHOSPHAMIDE. [Suspect]
     Active Substance: CYCLOPHOSPHAMIDE
     Indication: BURKITT^S LYMPHOMA
     Dosage: ON DAY 1 DAY 2 OF EACH CYCLE IN REGIMEN A(R-CODOX-M)
     Route: 042
  12. CYTARABINE. [Suspect]
     Active Substance: CYTARABINE
     Indication: BURKITT^S LYMPHOMA
     Dosage: ON DAY 1 OF EACH CYCLE IN REGIMEN A(R-CODOX-M) AND HIGH RISK DISEASE PATIENTS RECIEVED ON DAY 3 ALSO
     Route: 037
  13. PEGFILGRASTIM [Suspect]
     Active Substance: PEGFILGRASTIM
     Indication: BURKITT^S LYMPHOMA
     Dosage: ON DAY 3 OF EACH CYCLE IN REGIMEN A(R-CODOX-M) AND ON DAY 6 OF EACH CYCLE IN REGIMEN B (IVAC)
     Route: 065
  14. CYTARABINE. [Suspect]
     Active Substance: CYTARABINE
     Indication: BURKITT^S LYMPHOMA
     Dosage: ON DAY 1 AND 2 OF EACH CYCLE IN REGIMEN A(IVAC)
     Route: 042
  15. LEUCOVORIN. [Suspect]
     Active Substance: LEUCOVORIN
     Indication: BURKITT^S LYMPHOMA
     Dosage: AFTER 200 MG/M2, 25 MG/M2 WAS GIVEN EVERY 6 HOURS UNTIL THE METHOTREXATE LEVEL REACHED { 50 NMOL/L
     Route: 042
  16. HYDROCORTISONE. [Concomitant]
     Active Substance: HYDROCORTISONE
     Indication: ARACHNOIDITIS
     Route: 065

REACTIONS (5)
  - Off label use [Unknown]
  - Lung infiltration [Unknown]
  - Hepatic failure [Fatal]
  - Pneumonitis [Unknown]
  - Metabolic encephalopathy [Unknown]
